FAERS Safety Report 23648212 (Version 1)
Quarter: 2024Q1

REPORT INFORMATION
  Report Type: Spontaneous
  Country: HR (occurrence: HR)
  Receive Date: 20240319
  Receipt Date: 20240319
  Transmission Date: 20240410
  Serious: Yes (Other)
  Sender: FDA-Public Use
  Company Number: HR-SANDOZ-SDZ2024HR013229

PATIENT
  Sex: Female

DRUGS (10)
  1. DOXORUBICIN [Suspect]
     Active Substance: DOXORUBICIN
     Indication: Lymphadenopathy
     Dosage: UNK
     Route: 065
     Dates: start: 202309
  2. DOXORUBICIN [Suspect]
     Active Substance: DOXORUBICIN
     Indication: Lymphadenopathy
     Dosage: CONTINUED TREATMENT WITH R-DAEPOCH DO 6 CY
     Route: 065
     Dates: start: 202401
  3. ETOPOSIDE [Suspect]
     Active Substance: ETOPOSIDE
     Indication: Lymphadenopathy
     Dosage: - CONTINUED TREATMENT WITH R-DAEPOCH DO 6 CY
     Route: 065
     Dates: start: 202401
  4. ETOPOSIDE [Suspect]
     Active Substance: ETOPOSIDE
     Indication: Lymphadenopathy
     Dosage: UNK
     Route: 065
     Dates: start: 202309
  5. VINCRISTINE [Suspect]
     Active Substance: VINCRISTINE
     Indication: Lymphadenopathy
     Route: 065
     Dates: start: 202309
  6. VINCRISTINE [Suspect]
     Active Substance: VINCRISTINE
     Indication: Lymphadenopathy
     Dosage: CONTINUED TREATMENT WITH R-DAEPOCH DO 6 CY
     Route: 065
     Dates: start: 202401
  7. RITUXIMAB [Suspect]
     Active Substance: RITUXIMAB
     Indication: Lymphadenopathy
     Dosage: - CONTINUED TREATMENT WITH R-DAEPOCH DO 6 CY
     Route: 065
     Dates: start: 202401
  8. RITUXIMAB [Suspect]
     Active Substance: RITUXIMAB
     Indication: Lymphadenopathy
     Dosage: 1. CY 100+600MG IN SLOW INFUSION FROM 2. CY RIXATHON IN RAPID INFUSION OVER 90 MIN
     Route: 065
     Dates: start: 202309
  9. PREDNISOLONE [Suspect]
     Active Substance: PREDNISOLONE
     Indication: Lymphadenopathy
     Dosage: CONTINUED TREATMENT WITH R-DAEPOCH DO 6 CY
     Route: 065
     Dates: start: 202401
  10. PREDNISOLONE [Suspect]
     Active Substance: PREDNISOLONE
     Indication: Lymphadenopathy
     Route: 065
     Dates: start: 202309

REACTIONS (1)
  - Febrile neutropenia [Unknown]
